FAERS Safety Report 6173818-5 (Version None)
Quarter: 2009Q2

REPORT INFORMATION
  Report Type: 
  Country: None (occurrence: None)
  Receive Date: 20090429
  Receipt Date: 20090429
  Transmission Date: 20091009
  Serious: Yes (Death, Life-Threatening, Hospitalization)
  Sender: FDA-Public Use
  Company Number: None

PATIENT
  Age: 51 Year
  Sex: Female
  Weight: 47.6277 kg

DRUGS (7)
  1. SEROQUEL [Suspect]
  2. ALPRAZOLAM EXTENDED-RELEASE [Concomitant]
  3. DIAZEPAM [Concomitant]
  4. LEVOTHYROZINE [Concomitant]
  5. CYTOMEL [Concomitant]
  6. OXYCODONE HCL AND ACETAMINOPHEN [Concomitant]
  7. DELESTROGEN [Concomitant]

REACTIONS (12)
  - AGGRESSION [None]
  - ALCOHOLIC [None]
  - ANGER [None]
  - CHOKING [None]
  - COMPLETED SUICIDE [None]
  - DEPRESSION [None]
  - FALL [None]
  - IRRITABILITY [None]
  - LOSS OF CONSCIOUSNESS [None]
  - PARANOIA [None]
  - PSYCHOTIC DISORDER [None]
  - ROTATOR CUFF SYNDROME [None]
